FAERS Safety Report 24417542 (Version 1)
Quarter: 2024Q4

REPORT INFORMATION
  Report Type: Spontaneous
  Country: FR (occurrence: FR)
  Receive Date: 20241009
  Receipt Date: 20241009
  Transmission Date: 20250115
  Serious: Yes (Other)
  Sender: MYLAN
  Company Number: None

PATIENT
  Age: 74 Year

DRUGS (2)
  1. ROPIVACAINE [Suspect]
     Active Substance: ROPIVACAINE
     Indication: Anaesthesia
     Dosage: 75 MILLIGRAM, 1 TOTAL (ROUTE: PARENTERAL)
     Route: 065
     Dates: start: 20240917, end: 20240917
  2. LIDOCAINE [Suspect]
     Active Substance: LIDOCAINE
     Indication: Anaesthesia
     Dosage: 100 MILLIGRAM, 1 TOTAL (ROUTE: PARENTERAL)
     Route: 065
     Dates: start: 20240917, end: 20240917

REACTIONS (4)
  - Clonus [Recovered/Resolved]
  - Chest pain [Recovered/Resolved]
  - Paraesthesia oral [Recovered/Resolved]
  - Dyspnoea [Recovered/Resolved]

NARRATIVE: CASE EVENT DATE: 20240917
